FAERS Safety Report 4981278-2 (Version None)
Quarter: 2006Q1

REPORT INFORMATION
  Report Type: 
  Country: None (occurrence: None)
  Receive Date: 20060317
  Receipt Date: 20060407
  Transmission Date: 20060701
  Serious: Yes (Other)
  Sender: FDA-Public Use
  Company Number: MEDI-0004233

PATIENT
  Age: 4 Month
  Sex: Female
  Weight: 3.95 kg

DRUGS (11)
  1. CYTOGAM [Suspect]
     Indication: ANTIVIRAL PROPHYLAXIS
     Dosage: 400 MG, INTRAVENOUS
     Route: 042
     Dates: start: 20060206, end: 20060206
  2. CYTOGAM [Suspect]
     Indication: ANTIVIRAL PROPHYLAXIS
     Dosage: 400 MG, INTRAVENOUS
     Route: 042
     Dates: start: 20060222, end: 20060222
  3. NYSTATIN [Concomitant]
  4. ATOVAQUONE [Concomitant]
  5. BICITRA (SODIUM CITRATE, CITRIC ACID) [Concomitant]
  6. MAGNESIUM OXIDE (MAGNESIUM OXIDE) [Concomitant]
  7. METHADONE HCL [Concomitant]
  8. PREDNISOLONE [Concomitant]
  9. PROTONIX [Concomitant]
  10. TACROLIMUS (TACROLIMUS) [Concomitant]
  11. VALGANCYCLOVIR [Concomitant]

REACTIONS (6)
  - ANTI-ERYTHROCYTE ANTIBODY POSITIVE [None]
  - BLOOD BILIRUBIN INCREASED [None]
  - COOMBS DIRECT TEST POSITIVE [None]
  - HAEMATOCRIT DECREASED [None]
  - HAEMOLYSIS [None]
  - HAPTOGLOBIN DECREASED [None]
